FAERS Safety Report 21096292 (Version 2)
Quarter: 2022Q3

REPORT INFORMATION
  Report Type: Spontaneous
  Country: MY (occurrence: MY)
  Receive Date: 20220718
  Receipt Date: 20220727
  Transmission Date: 20221026
  Serious: Yes (Hospitalization, Other)
  Sender: FDA-Public Use
  Company Number: MY-SA-SAC20220715001294

PATIENT
  Sex: Female

DRUGS (1)
  1. DUPIXENT [Suspect]
     Active Substance: DUPILUMAB
     Indication: Dermatitis atopic
     Route: 065

REACTIONS (3)
  - Tuberculosis [Unknown]
  - Pulmonary granuloma [Unknown]
  - Myalgia [Unknown]
